FAERS Safety Report 8848903 (Version 2)
Quarter: 2012Q4

REPORT INFORMATION
  Report Type: 
  Country: CA (occurrence: CA)
  Receive Date: 20121018
  Receipt Date: 20121128
  Transmission Date: 20130627
  Serious: Yes (Death)
  Sender: FDA-Public Use
  Company Number: PHHY2012CA092243

PATIENT
  Sex: Male

DRUGS (1)
  1. ZOMETA [Suspect]
     Indication: METASTASES TO BONE
     Dosage: 4 mg, Every 4 weeks
     Route: 042
     Dates: start: 20111221

REACTIONS (2)
  - Malignant neoplasm progression [Fatal]
  - Metastasis [Fatal]
